FAERS Safety Report 10732321 (Version 3)
Quarter: 2015Q2

REPORT INFORMATION
  Report Type: Spontaneous
  Country: US (occurrence: US)
  Receive Date: 20150123
  Receipt Date: 20150611
  Transmission Date: 20150821
  Serious: Yes (Life-Threatening, Hospitalization, Other)
  Sender: FDA-Public Use
  Company Number: US-BAYER-2015-008568

PATIENT
  Age: 27 Year
  Sex: Female

DRUGS (6)
  1. YASMIN [Suspect]
     Active Substance: DROSPIRENONE\ETHINYL ESTRADIOL
     Dosage: UNK
     Dates: start: 20060830, end: 20061028
  2. CRESTOR [Concomitant]
     Active Substance: ROSUVASTATIN CALCIUM
  3. ACETAMINOPHEN. [Concomitant]
     Active Substance: ACETAMINOPHEN
  4. PROTONIX [Concomitant]
     Active Substance: PANTOPRAZOLE SODIUM
  5. MITROLAN [Concomitant]
     Active Substance: CALCIUM POLYCARBOPHIL
  6. COLACE [Concomitant]
     Active Substance: DOCUSATE SODIUM

REACTIONS (7)
  - Anxiety [None]
  - Emotional distress [None]
  - Injury [None]
  - Pain [None]
  - Cerebrovascular accident [None]
  - General physical health deterioration [None]
  - Pulmonary embolism [None]

NARRATIVE: CASE EVENT DATE: 20061028
